FAERS Safety Report 9779449 (Version 1)
Quarter: 2013Q4

REPORT INFORMATION
  Report Type: Spontaneous
  Country: DE (occurrence: DE)
  Receive Date: 20131223
  Receipt Date: 20131223
  Transmission Date: 20140711
  Serious: Yes (Hospitalization, Congenital Anomaly, Other)
  Sender: FDA-Public Use
  Company Number: DE-PFIZER INC-2013364512

PATIENT
  Sex: Male
  Weight: 2.76 kg

DRUGS (5)
  1. VENLAFAXINE HCL [Suspect]
     Indication: MAJOR DEPRESSION
     Dosage: 375 MG, DAILY
     Route: 064
  2. VENLAFAXINE HCL [Suspect]
     Dosage: 225 MG, DAILY
     Route: 064
  3. VENLAFAXINE HCL [Suspect]
     Dosage: 150 MG, DAILY
     Route: 064
  4. SEROQUEL [Suspect]
     Indication: MAJOR DEPRESSION
     Dosage: 300 MG, DAILY
     Route: 064
  5. ELONTRIL [Suspect]
     Indication: MAJOR DEPRESSION
     Dosage: 300 MG, DAILY
     Route: 064

REACTIONS (6)
  - Maternal exposure during pregnancy [Unknown]
  - Neonatal respiratory distress syndrome [Recovered/Resolved]
  - Feeding disorder neonatal [Recovered/Resolved]
  - Small for dates baby [Recovered/Resolved]
  - Oxygen saturation decreased [Recovered/Resolved]
  - Atrial septal defect [Unknown]
